FAERS Safety Report 17372230 (Version 2)
Quarter: 2020Q1

REPORT INFORMATION
  Report Type: Spontaneous
  Country: US (occurrence: US)
  Receive Date: 20200205
  Receipt Date: 20200213
  Transmission Date: 20200409
  Serious: Yes (Other)
  Sender: FDA-Public Use
  Company Number: US-ASTRAZENECA-2020SE15498

PATIENT
  Age: 63 Year
  Sex: Male
  Weight: 131.5 kg

DRUGS (14)
  1. ATORVASTATIN [Concomitant]
     Active Substance: ATORVASTATIN
     Indication: BLOOD CHOLESTEROL
     Dates: start: 2018
  2. TAMSULOSIN [Concomitant]
     Active Substance: TAMSULOSIN
     Indication: PROPHYLAXIS
     Route: 048
     Dates: start: 202001
  3. PROCHLORPERAZAINE [Concomitant]
     Indication: CHEMOTHERAPY
     Dates: start: 20200127
  4. BYDUREON [Suspect]
     Active Substance: EXENATIDE
     Indication: DIABETES MELLITUS
     Route: 058
     Dates: start: 2019
  5. LYRICA [Concomitant]
     Active Substance: PREGABALIN
     Indication: NEUROPATHY PERIPHERAL
     Route: 048
     Dates: start: 2019
  6. METFORMIN ER [Concomitant]
     Active Substance: METFORMIN HYDROCHLORIDE
     Indication: DIABETES MELLITUS
     Dates: start: 2018
  7. JENBOYA [Concomitant]
     Indication: HIV INFECTION
     Route: 048
     Dates: start: 2019
  8. TRAMADOL. [Concomitant]
     Active Substance: TRAMADOL
     Dosage: AS REQUIRED
  9. PROCHLORPERAZAINE [Concomitant]
     Indication: NAUSEA
     Dates: start: 20200127
  10. LANTUS SOLSTAR [Concomitant]
  11. AMITRIPTYLINE HCL [Concomitant]
     Active Substance: AMITRIPTYLINE
     Indication: HIV TEST POSITIVE
     Route: 048
  12. GLIPIZIDE ER [Concomitant]
     Active Substance: GLIPIZIDE
     Dates: start: 2018
  13. LISINOPRIL. [Concomitant]
     Active Substance: LISINOPRIL
     Dosage: 1-2 YEARS AGO
  14. METOPROLOL TARTRATE. [Suspect]
     Active Substance: METOPROLOL TARTRATE
     Indication: PROSTATE CANCER
     Route: 065
     Dates: start: 201910

REACTIONS (5)
  - Neuropathy peripheral [Not Recovered/Not Resolved]
  - Lip and/or oral cavity cancer [Not Recovered/Not Resolved]
  - Product solubility abnormal [Unknown]
  - Prostate cancer [Not Recovered/Not Resolved]
  - Musculoskeletal cancer [Not Recovered/Not Resolved]

NARRATIVE: CASE EVENT DATE: 2019
